FAERS Safety Report 10190582 (Version 2)
Quarter: 2014Q2

REPORT INFORMATION
  Report Type: Spontaneous
  Country: CZ (occurrence: CZ)
  Receive Date: 20140523
  Receipt Date: 20140602
  Transmission Date: 20141212
  Serious: Yes (Other)
  Sender: FDA-Public Use
  Company Number: CZ-ROCHE-1403943

PATIENT
  Age: 51 Year
  Sex: Female

DRUGS (8)
  1. PERJETA [Suspect]
     Indication: BREAST CANCER
     Dosage: 840 MG IN THE SATURATION DOSE THEN 420 MG
     Route: 042
     Dates: start: 20140414
  2. PERJETA [Suspect]
     Dosage: SECOND CYCLE
     Route: 042
     Dates: start: 20140505, end: 20140505
  3. HERCEPTIN [Suspect]
     Indication: BREAST CANCER
     Route: 065
     Dates: start: 20140414, end: 20140505
  4. TAXOTERE [Suspect]
     Indication: BREAST CANCER
     Route: 065
     Dates: start: 20140414, end: 20140505
  5. ZALDIAR [Concomitant]
     Indication: ARTHRALGIA
     Dosage: IRREGULARLY, 1-2 TABLETS DAILY
     Route: 048
  6. NEULASTA [Concomitant]
     Route: 058
     Dates: end: 20140506
  7. DEGAN [Concomitant]
     Dosage: 2 AMP
     Route: 065
     Dates: start: 20140505, end: 20140505
  8. DEXAMED (CZECH REPUBLIC) [Concomitant]
     Dosage: 2 AMP
     Route: 065
     Dates: start: 20140505, end: 20140505

REACTIONS (1)
  - Viral rash [Not Recovered/Not Resolved]
